FAERS Safety Report 18100383 (Version 1)
Quarter: 2020Q3

REPORT INFORMATION
  Report Type: Spontaneous
  Country: TW (occurrence: TW)
  Receive Date: 20200731
  Receipt Date: 20200731
  Transmission Date: 20201103
  Serious: Yes (Other)
  Sender: FDA-Public Use
  Company Number: TW-JNJFOC-20200735647

PATIENT
  Age: 59 Year
  Sex: Male
  Weight: 55 kg

DRUGS (3)
  1. SIMPONI [Suspect]
     Active Substance: GOLIMUMAB
     Indication: ANKYLOSING SPONDYLITIS
     Dosage: Q4~6 WEEK
     Route: 058
     Dates: start: 20150406, end: 20200529
  2. PENTOP [Concomitant]
     Indication: CHRONIC KIDNEY DISEASE
     Route: 048
     Dates: start: 20171109
  3. SALAZINE [Concomitant]
     Active Substance: SULFASALAZINE
     Indication: ANKYLOSING SPONDYLITIS
     Route: 048
     Dates: start: 20160729

REACTIONS (3)
  - Off label use [Unknown]
  - Product use issue [Unknown]
  - Hepatic cancer [Not Recovered/Not Resolved]
